FAERS Safety Report 9819022 (Version 2)
Quarter: 2014Q1

REPORT INFORMATION
  Report Type: Spontaneous
  Country: CA (occurrence: None)
  Receive Date: 20140113
  Receipt Date: 20140218
  Transmission Date: 20141002
  Serious: Yes (Hospitalization)
  Sender: FDA-Public Use
  Company Number: CA-014232

PATIENT
  Age: 83 Year
  Sex: Male

DRUGS (7)
  1. FIRMAGON [Suspect]
     Indication: PROSTATE CANCER
     Dosage: (240 MG 1X SUBCUTANEOUS), (80 MG 1X/MONTH SUBCUTANEOUS)
     Route: 058
     Dates: start: 20120112, end: 20120112
  2. METFORMIN [Concomitant]
  3. ALLOPURINOL [Concomitant]
  4. ANTI-ANDROGENS [Concomitant]
  5. PREDNISONE [Concomitant]
  6. ZANTAC [Concomitant]
  7. CALTRATE D PLUS MINERALS [Concomitant]

REACTIONS (5)
  - Femoral neck fracture [None]
  - Pathological fracture [None]
  - Pelvic pain [None]
  - Bone neoplasm [None]
  - Stress fracture [None]
